FAERS Safety Report 5587480-3 (Version None)
Quarter: 2007Q4

REPORT INFORMATION
  Report Type: 
  Country: None (occurrence: None)
  Receive Date: 20071205
  Receipt Date: 20070105
  Transmission Date: 20080405
  Serious: Yes (Other)
  Sender: FDA-Public Use
  Company Number: HQWYE726208JAN07

PATIENT
  Sex: Male

DRUGS (1)
  1. EFFEXOR XR [Suspect]
     Indication: DRUG USE FOR UNKNOWN INDICATION
     Dosage: OVERDOSE AMOUNT UNKNOWN, ORAL
     Route: 048

REACTIONS (3)
  - INTENTIONAL OVERDOSE [None]
  - MAJOR DEPRESSION [None]
  - SUICIDE ATTEMPT [None]
